FAERS Safety Report 15082208 (Version 2)
Quarter: 2018Q3

REPORT INFORMATION
  Report Type: Spontaneous
  Country: US (occurrence: US)
  Receive Date: 20180628
  Receipt Date: 20180706
  Transmission Date: 20181010
  Serious: No
  Sender: FDA-Public Use
  Company Number: US-HORIZON-VIM-1009-2018

PATIENT
  Age: 39 Year
  Sex: Female

DRUGS (1)
  1. VIMOVO [Suspect]
     Active Substance: ESOMEPRAZOLE MAGNESIUM\NAPROXEN
     Indication: MIGRAINE
     Dates: start: 2018, end: 2018

REACTIONS (3)
  - Off label use [Unknown]
  - Expired product administered [Unknown]
  - Diarrhoea [Recovered/Resolved]

NARRATIVE: CASE EVENT DATE: 20180607
